FAERS Safety Report 9466828 (Version 1)
Quarter: 2013Q3

REPORT INFORMATION
  Report Type: Spontaneous
  Country: US (occurrence: US)
  Receive Date: 20130820
  Receipt Date: 20130820
  Transmission Date: 20140515
  Serious: Yes (Death)
  Sender: FDA-Public Use
  Company Number: US-INCYTE CORPORATION-2013IN001851

PATIENT
  Sex: Male
  Weight: 104.31 kg

DRUGS (1)
  1. JAKAFI [Suspect]
     Indication: MYELOID LEUKAEMIA
     Dosage: 20 MG, BID
     Route: 048
     Dates: start: 20130605

REACTIONS (1)
  - Death [Fatal]
